FAERS Safety Report 4874236-X (Version None)
Quarter: 2006Q1

REPORT INFORMATION
  Report Type: 
  Country: None (occurrence: None)
  Receive Date: 20060106
  Receipt Date: 20050914
  Transmission Date: 20060701
  Serious: Yes (Hospitalization)
  Sender: FDA-Public Use
  Company Number: US-MERCK-0509USA01942

PATIENT
  Age: 64 Year
  Sex: Female
  Weight: 82 kg

DRUGS (16)
  1. VIOXX [Suspect]
     Indication: ROTATOR CUFF SYNDROME
     Route: 048
     Dates: start: 20020112, end: 20031023
  2. VIOXX [Suspect]
     Route: 048
     Dates: start: 19990101, end: 20031023
  3. VIOXX [Suspect]
     Route: 048
     Dates: start: 19990101, end: 20031023
  4. VIOXX [Suspect]
     Indication: TENDONITIS
     Route: 048
     Dates: start: 20020112, end: 20031023
  5. VIOXX [Suspect]
     Route: 048
     Dates: start: 19990101, end: 20031023
  6. VIOXX [Suspect]
     Route: 048
     Dates: start: 19990101, end: 20031023
  7. AMBIEN [Concomitant]
     Indication: INSOMNIA
     Route: 065
  8. ZYRTEC [Concomitant]
     Indication: ALLERGIC SINUSITIS
     Route: 065
  9. ALBUTEROL [Concomitant]
     Indication: WHEEZING
     Route: 065
  10. PREMARIN [Concomitant]
     Indication: MENOPAUSE
     Route: 048
     Dates: start: 19980101, end: 20020101
  11. PROZAC [Concomitant]
     Indication: DEPRESSION
     Route: 048
     Dates: start: 19960101
  12. CALCIUM (UNSPECIFIED) [Concomitant]
     Route: 048
     Dates: start: 19980101
  13. VITAMIN E [Concomitant]
     Route: 048
     Dates: start: 19980101
  14. VITAMINS (UNSPECIFIED) [Concomitant]
     Route: 048
     Dates: start: 19980101
  15. ELAVIL [Concomitant]
     Indication: DEPRESSION
     Route: 048
     Dates: start: 19990101
  16. TYLENOL [Concomitant]
     Route: 065
     Dates: start: 19990101

REACTIONS (8)
  - ANXIETY [None]
  - BLOOD CHOLESTEROL INCREASED [None]
  - CEREBRAL ISCHAEMIA [None]
  - CEREBROVASCULAR ACCIDENT [None]
  - MENINGIOMA [None]
  - PAIN [None]
  - PLANTAR FASCIITIS [None]
  - TIBIA FRACTURE [None]
